FAERS Safety Report 16633956 (Version 1)
Quarter: 2019Q3

REPORT INFORMATION
  Report Type: Spontaneous
  Country: US (occurrence: US)
  Receive Date: 20190725
  Receipt Date: 20190725
  Transmission Date: 20191004
  Serious: No
  Sender: FDA-Public Use
  Company Number: US-DERMIRA, INC.-US-2019DER000302

PATIENT
  Age: 25 Year
  Sex: Male

DRUGS (2)
  1. GLYCOPYRROLATE                     /00196201/ [Suspect]
     Active Substance: GLYCOPYRRONIUM
     Indication: HYPERHIDROSIS
     Dosage: TWO TABLETS DAILY
     Route: 048
     Dates: start: 20190503, end: 20190505
  2. QBREXZA [Suspect]
     Active Substance: GLYCOPYRRONIUM TOSYLATE
     Indication: HYPERHIDROSIS
     Dosage: UNK, QD
     Route: 061
     Dates: start: 20190503, end: 20190505

REACTIONS (1)
  - Mydriasis [Not Recovered/Not Resolved]

NARRATIVE: CASE EVENT DATE: 20190506
